FAERS Safety Report 25376475 (Version 1)
Quarter: 2025Q2

REPORT INFORMATION
  Report Type: Spontaneous
  Country: FR (occurrence: FR)
  Receive Date: 20250529
  Receipt Date: 20250529
  Transmission Date: 20250717
  Serious: Yes (Other)
  Sender: VIIV
  Company Number: FR-ViiV Healthcare-98835

PATIENT

DRUGS (1)
  1. MARAVIROC [Suspect]
     Active Substance: MARAVIROC
     Indication: Post-acute COVID-19 syndrome
     Dosage: UNK, QD
     Dates: start: 20250523

REACTIONS (13)
  - Brain fog [Not Recovered/Not Resolved]
  - Myalgia [Unknown]
  - Musculoskeletal chest pain [Unknown]
  - Pain in jaw [Unknown]
  - Abdominal pain [Unknown]
  - Nausea [Unknown]
  - Dizziness [Unknown]
  - Amnesia [Unknown]
  - Hypersomnia [Unknown]
  - Fatigue [Not Recovered/Not Resolved]
  - Speech disorder [Unknown]
  - Off label use [Unknown]
  - Wrong technique in product usage process [Unknown]

NARRATIVE: CASE EVENT DATE: 20250523
